FAERS Safety Report 7823036-7 (Version None)
Quarter: 2011Q4

REPORT INFORMATION
  Report Type: 
  Country: None (occurrence: None)
  Receive Date: 20111018
  Receipt Date: 20110106
  Transmission Date: 20120403
  Serious: No
  Sender: FDA-Public Use
  Company Number: US-ASTRAZENECA-2010SE57958

PATIENT
  Sex: Female

DRUGS (5)
  1. MEDICATION FOR THYROID [Concomitant]
     Indication: THYROID DISORDER
  2. MEDICATION FOR DIABETES [Concomitant]
     Indication: DIABETES MELLITUS
  3. MEDICATION FOR BLOOD PRESSURE [Concomitant]
     Indication: HYPERTENSION
  4. SYMBICORT [Suspect]
     Indication: ASTHMA
     Dosage: 80-4.5 MCG - 2 PUFFS BID
     Route: 055
     Dates: start: 20100901
  5. SYMBICORT [Suspect]
     Dosage: 80-4.5 MCG - 2 BID
     Route: 055
     Dates: start: 20101120

REACTIONS (6)
  - DYSPNOEA [None]
  - INCREASED APPETITE [None]
  - DRUG INEFFECTIVE [None]
  - FEELING ABNORMAL [None]
  - WEIGHT INCREASED [None]
  - DYSPHONIA [None]
